FAERS Safety Report 7313557-8 (Version None)
Quarter: 2011Q1

REPORT INFORMATION
  Report Type: 
  Country: None (occurrence: None)
  Receive Date: 20110215
  Receipt Date: 20110215
  Transmission Date: 20110831
  Serious: Yes (Life-Threatening, Hospitalization)
  Sender: FDA-Public Use
  Company Number: None

PATIENT
  Age: 41 Year
  Sex: Male

DRUGS (1)
  1. ANTABUSE [Suspect]
     Indication: ALCOHOL ABUSE
     Dosage: 500MG THREE TIMES WEEKLY PO
     Route: 048
     Dates: start: 20110123, end: 20110131

REACTIONS (2)
  - HEPATITIS [None]
  - ENCEPHALOPATHY [None]
